FAERS Safety Report 10921495 (Version 1)
Quarter: 2015Q1

REPORT INFORMATION
  Report Type: Spontaneous
  Country: US (occurrence: None)
  Receive Date: 20150313
  Receipt Date: 20150313
  Transmission Date: 20150721
  Serious: Yes (Other)
  Sender: FDA-Public Use
  Company Number: None

PATIENT
  Age: 79 Year
  Sex: Female
  Weight: 56.7 kg

DRUGS (1)
  1. MULTIHANCE [Suspect]
     Active Substance: GADOBENATE DIMEGLUMINE
     Indication: NUCLEAR MAGNETIC RESONANCE IMAGING BRAIN
     Dosage: 10 CC  QD INTRAVENOUS
     Route: 042
     Dates: start: 20150312, end: 20150312

REACTIONS (6)
  - Erythema [None]
  - Pruritus [None]
  - Lacrimation increased [None]
  - Contrast media reaction [None]
  - Lip swelling [None]
  - Heart rate increased [None]

NARRATIVE: CASE EVENT DATE: 20150312
